FAERS Safety Report 5239135-2 (Version None)
Quarter: 2007Q1

REPORT INFORMATION
  Report Type: 
  Country: None (occurrence: None)
  Receive Date: 20070212
  Receipt Date: 20070126
  Transmission Date: 20070707
  Serious: Yes (Hospitalization)
  Sender: FDA-Public Use
  Company Number: 2007JP000249

PATIENT
  Age: 61 Year
  Sex: Female

DRUGS (7)
  1. PROGRAF [Suspect]
     Indication: RENAL TRANSPLANT
     Dosage: SEE IMAGE
  2. PROGRAF [Suspect]
     Indication: RENAL TRANSPLANT
     Dosage: 0.02 MG/KG, D, IV DRIP
     Route: 041
  3. MYCOPHENOLATE MOFETIL [Concomitant]
  4. CYCLOPHOSPHAMIDE [Concomitant]
  5. METHYLPREDNISOLONE 16MG TAB [Concomitant]
  6. MIZORIBINE [Concomitant]
  7. BAYASPIRIN FORMULATION [Concomitant]

REACTIONS (3)
  - INTESTINAL OBSTRUCTION [None]
  - SPLENECTOMY [None]
  - VARICELLA [None]
